FAERS Safety Report 18354974 (Version 1)
Quarter: 2020Q4

REPORT INFORMATION
  Report Type: Report from Study
  Country: DO (occurrence: DO)
  Receive Date: 20201007
  Receipt Date: 20201007
  Transmission Date: 20210114
  Serious: Yes (Hospitalization)
  Sender: FDA-Public Use
  Company Number: NVSC2020DO267905

PATIENT
  Age: 80 Year
  Sex: Female

DRUGS (1)
  1. VYMADA [Suspect]
     Active Substance: SACUBITRIL\VALSARTAN
     Indication: PRODUCT USED FOR UNKNOWN INDICATION
     Dosage: 50 MG, UNKNOWN (STARTED 4 MONTHS AGO)
     Route: 065

REACTIONS (2)
  - Cardiac failure [Recovering/Resolving]
  - Acute pulmonary oedema [Recovering/Resolving]
